FAERS Safety Report 5468964-5 (Version None)
Quarter: 2007Q3

REPORT INFORMATION
  Report Type: 
  Country: None (occurrence: None)
  Receive Date: 20070820
  Receipt Date: 20070622
  Transmission Date: 20080115
  Serious: No
  Sender: FDA-Public Use
  Company Number: WAES 0706USA04349

PATIENT
  Age: 48 Year
  Sex: Male

DRUGS (5)
  1. JANUVIA [Suspect]
     Indication: TYPE 2 DIABETES MELLITUS
     Dosage: 100 MG/DAILY/PO
     Route: 048
     Dates: start: 20070607, end: 20070610
  2. DIOVAN [Concomitant]
  3. GLUCOTROL XL [Concomitant]
  4. TARKA [Concomitant]
  5. METFORMIN [Concomitant]

REACTIONS (3)
  - MYALGIA [None]
  - NECK PAIN [None]
  - SWELLING FACE [None]
